FAERS Safety Report 25883885 (Version 2)
Quarter: 2025Q4

REPORT INFORMATION
  Report Type: Spontaneous
  Country: IN (occurrence: IN)
  Receive Date: 20251006
  Receipt Date: 20251015
  Transmission Date: 20260118
  Serious: Yes (Hospitalization)
  Sender: ACCORD
  Company Number: IN-MLMSERVICE-20250915-PI645047-00306-1

PATIENT
  Age: 52 Year
  Sex: Male

DRUGS (6)
  1. TACROLIMUS [Interacting]
     Active Substance: TACROLIMUS
     Indication: Immunosuppressant drug therapy
     Dosage: REDUCING THE TACROLIMUS DOSE BY NEARLY 57% OF THE ORIGINAL DOSE (1.75- MG BD)
     Dates: end: 2025
  2. FLUCONAZOLE [Interacting]
     Active Substance: FLUCONAZOLE
     Indication: Oral candidiasis
     Dates: start: 20250506, end: 20250520
  3. ATAZANAVIR SULFATE\RITONAVIR [Interacting]
     Active Substance: ATAZANAVIR SULFATE\RITONAVIR
     Indication: HIV infection
     Dates: start: 20250421, end: 202505
  4. MYCOPHENOLIC ACID [Concomitant]
     Active Substance: MYCOPHENOLIC ACID
     Indication: Immunosuppressant drug therapy
     Dates: start: 202505, end: 202505
  5. PREDNISOLONE [Concomitant]
     Active Substance: PREDNISOLONE
     Indication: Immunosuppressant drug therapy
     Dates: start: 202505
  6. TACROLIMUS [Interacting]
     Active Substance: TACROLIMUS
     Indication: Immunosuppressant drug therapy
     Dosage: REDUCING THE TACROLIMUS DOSE BY NEARLY 57% OF THE ORIGINAL DOSE (1.75- MG BD)
     Dates: start: 2025, end: 202505

REACTIONS (23)
  - Gait disturbance [Recovered/Resolved]
  - Myalgia [Recovered/Resolved]
  - Dysphagia [Recovered/Resolved]
  - Asthenia [Recovered/Resolved]
  - Mental status changes [Recovered/Resolved]
  - Headache [Recovered/Resolved]
  - Decreased appetite [Recovered/Resolved]
  - Somnolence [Recovered/Resolved]
  - Mouth ulceration [Recovered/Resolved]
  - Blood creatinine increased [Recovered/Resolved]
  - Electrolyte imbalance [Recovered/Resolved]
  - Hyperglycaemia [Recovered/Resolved]
  - Drug interaction [Recovered/Resolved]
  - Wrong product administered [Recovered/Resolved]
  - Toxicity to various agents [Recovered/Resolved]
  - Arthralgia [Recovered/Resolved]
  - Nausea [Recovered/Resolved]
  - Confusional state [Recovered/Resolved]
  - Xerosis [Recovered/Resolved]
  - Weight decreased [Recovered/Resolved]
  - Abdominal distension [Recovered/Resolved]
  - Constipation [Recovered/Resolved]
  - Back pain [Recovered/Resolved]

NARRATIVE: CASE EVENT DATE: 20250501
